FAERS Safety Report 4607364-4 (Version None)
Quarter: 2005Q1

REPORT INFORMATION
  Report Type: 
  Country: None (occurrence: None)
  Receive Date: 20050310
  Receipt Date: 20050224
  Transmission Date: 20050727
  Serious: Yes (Hospitalization)
  Sender: FDA-Public Use
  Company Number: 2003IM001285

PATIENT
  Age: 53 Year
  Sex: Female

DRUGS (7)
  1. INFERAX (INTERFERON ALFACON-1) [Suspect]
     Indication: HEPATITIS C
     Dosage: 27 UG, QD, SUBCUTANEOUS; SEE IMAGE
     Route: 058
     Dates: start: 20030214, end: 20030228
  2. INFERAX (INTERFERON ALFACON-1) [Suspect]
     Indication: HEPATITIS C
     Dosage: 27 UG, QD, SUBCUTANEOUS; SEE IMAGE
     Route: 058
     Dates: start: 20030301, end: 20030509
  3. INFERAX (INTERFERON ALFACON-1) [Suspect]
     Indication: HEPATITIS C
     Dosage: 27 UG, QD, SUBCUTANEOUS; SEE IMAGE
     Route: 058
     Dates: start: 20030510, end: 20031216
  4. INFERAX (INTERFERON ALFACON-1) [Suspect]
     Indication: HEPATITIS C
     Dosage: 27 UG, QD, SUBCUTANEOUS; SEE IMAGE
     Route: 058
     Dates: start: 20031217, end: 20040116
  5. REBETOL [Suspect]
     Indication: HEPATITIS C
     Dosage: 800 MG, QD, ORAL; SEE IMAGE
     Route: 048
     Dates: start: 20030510, end: 20030611
  6. REBETOL [Suspect]
     Indication: HEPATITIS C
     Dosage: 800 MG, QD, ORAL; SEE IMAGE
     Route: 048
     Dates: start: 20030612, end: 20040116
  7. METOPROLOL [Suspect]
     Dosage: 47.5 MG
     Dates: start: 20020701

REACTIONS (8)
  - APHASIA [None]
  - CAROTID ARTERY OCCLUSION [None]
  - DISTURBANCE IN ATTENTION [None]
  - HYPERTENSION [None]
  - LEUKOENCEPHALOPATHY [None]
  - MEMORY IMPAIRMENT [None]
  - SPEECH DISORDER [None]
  - VERTIGO [None]
